FAERS Safety Report 4686896-7 (Version None)
Quarter: 2005Q2

REPORT INFORMATION
  Report Type: 
  Country: None (occurrence: None)
  Receive Date: 20050608
  Receipt Date: 20050608
  Transmission Date: 20051028
  Serious: No
  Sender: FDA-Public Use
  Company Number: 11323

PATIENT
  Age: 69 Year
  Sex: Male

DRUGS (6)
  1. AMIODARONE [Suspect]
     Indication: ATRIAL FIBRILLATION
     Dosage: 200 MG , PO
     Route: 048
  2. AMIODARONE [Suspect]
     Indication: VENTRICULAR TACHYCARDIA
     Dosage: 200 MG , PO
     Route: 048
  3. ASPIRIN [Concomitant]
  4. ATORVASTATIN CALCIUM [Concomitant]
  5. ENALAPRIL MALEATE [Concomitant]
  6. ALGINIC ACID/CALCIUM CARBONATE [Concomitant]

REACTIONS (2)
  - PHOTOSENSITIVITY REACTION [None]
  - SKIN DISCOLOURATION [None]
